FAERS Safety Report 7426056-X (Version None)
Quarter: 2011Q2

REPORT INFORMATION
  Report Type: 
  Country: None (occurrence: None)
  Receive Date: 20110420
  Receipt Date: 20110415
  Transmission Date: 20111010
  Serious: Yes (Hospitalization)
  Sender: FDA-Public Use
  Company Number: BE-ROCHE-762264

PATIENT
  Sex: Female
  Weight: 48 kg

DRUGS (3)
  1. PANTOPRAZOLE SODIUM [Concomitant]
     Route: 048
     Dates: start: 20100922, end: 20101007
  2. CAPECITABINE [Suspect]
     Indication: RECTAL CANCER
     Dosage: 825 MG/M2 P.O BID D1-33 W/O WEEKENDS+OPTIONAL BOOST.LAST DOSE PRIOR TO SAE:9 DEC 2010
     Route: 048
     Dates: start: 20101110, end: 20101210
  3. OXALIPLATIN [Suspect]
     Indication: RECTAL CANCER
     Dosage: 50 MG/M2 I.V ON D1,2,15,22 AND 29. LAST DOSE PRIOR TO SAE: 08 DEC 2010.
     Route: 042
     Dates: start: 20101110, end: 20101210

REACTIONS (4)
  - GENERAL PHYSICAL HEALTH DETERIORATION [None]
  - VULVOVAGINAL ERYTHEMA [None]
  - WOUND [None]
  - HYPOKALAEMIA [None]
